FAERS Safety Report 25336345 (Version 4)
Quarter: 2025Q2

REPORT INFORMATION
  Report Type: Spontaneous
  Country: US (occurrence: US)
  Receive Date: 20250520
  Receipt Date: 20250626
  Transmission Date: 20250716
  Serious: No
  Sender: PFIZER
  Company Number: US-PFIZER INC-202500099753

PATIENT
  Age: 48 Year
  Sex: Male

DRUGS (1)
  1. GENOTROPIN [Suspect]
     Active Substance: SOMATROPIN
     Dosage: 2 MG, DAILY

REACTIONS (5)
  - Incorrect dose administered by device [Unknown]
  - Drug administered in wrong device [Unknown]
  - Device delivery system issue [Unknown]
  - Device breakage [Unknown]
  - Device material issue [Unknown]
